FAERS Safety Report 5176648-6 (Version None)
Quarter: 2006Q4

REPORT INFORMATION
  Report Type: 
  Country: None (occurrence: None)
  Receive Date: 20061215
  Receipt Date: 20061206
  Transmission Date: 20070319
  Serious: Yes (Hospitalization, Other)
  Sender: FDA-Public Use
  Company Number: CA-ABBOTT-06P-028-0352725-00

PATIENT
  Sex: Female
  Weight: 59.928 kg

DRUGS (3)
  1. HUMIRA [Suspect]
     Indication: RHEUMATOID ARTHRITIS
     Route: 058
     Dates: end: 20060908
  2. METHOTREXATE [Suspect]
     Indication: RHEUMATOID ARTHRITIS
     Route: 048
     Dates: end: 20060101
  3. METHOTREXATE [Suspect]
     Route: 048
     Dates: start: 20061101

REACTIONS (4)
  - CARDIAC DISORDER [None]
  - CARDIOMEGALY [None]
  - INFARCTION [None]
  - PULMONARY OEDEMA [None]
